FAERS Safety Report 6115361-5 (Version None)
Quarter: 2009Q1

REPORT INFORMATION
  Report Type: 
  Country: None (occurrence: None)
  Receive Date: 20090313
  Receipt Date: 20090302
  Transmission Date: 20090719
  Serious: Yes (Other)
  Sender: FDA-Public Use
  Company Number: US-PFIZER INC-2008053427

PATIENT
  Sex: Female
  Weight: 107 kg

DRUGS (14)
  1. PREGABALIN [Suspect]
     Indication: PAIN MANAGEMENT
     Dosage: 150 MG, 2X/DAY
     Route: 048
     Dates: start: 20080527, end: 20080622
  2. VICODIN [Concomitant]
     Dosage: 5/500 MG
     Route: 048
     Dates: start: 20080531
  3. MILK OF MAGNESIA [Concomitant]
     Route: 048
     Dates: start: 20080601
  4. CAPTOPRIL [Concomitant]
     Route: 048
     Dates: start: 19920101
  5. PULMICORT-100 [Concomitant]
     Route: 055
     Dates: start: 20080531
  6. ZETIA [Concomitant]
     Route: 048
     Dates: start: 20080601
  7. FERROUS SULFATE TAB [Concomitant]
     Route: 048
     Dates: start: 20080529
  8. LOZOL [Concomitant]
     Route: 048
     Dates: start: 20080601
  9. PREVACID [Concomitant]
     Route: 048
     Dates: start: 20080601
  10. METOPROLOL TARTRATE [Concomitant]
     Route: 048
     Dates: start: 20080529
  11. SENNA [Concomitant]
     Dosage: 2 TABLETS
     Route: 048
     Dates: start: 20080528
  12. POTASSIUM CHLORIDE [Concomitant]
     Route: 048
     Dates: start: 20080601
  13. COLCHICINE [Concomitant]
     Route: 048
     Dates: start: 20080601
  14. ASPIRIN [Concomitant]
     Route: 048
     Dates: start: 20080601

REACTIONS (1)
  - DEPRESSION [None]
